FAERS Safety Report 7698671-X (Version None)
Quarter: 2011Q3

REPORT INFORMATION
  Report Type: 
  Country: None (occurrence: None)
  Receive Date: 20110818
  Receipt Date: 20110818
  Transmission Date: 20111222
  Serious: No
  Sender: FDA-Public Use
  Company Number: None

PATIENT
  Age: 72 Year
  Sex: Female

DRUGS (1)
  1. REVATIO [Suspect]
     Dosage: 100MG TID PO
     Route: 048
     Dates: start: 20081023, end: 20110815

REACTIONS (3)
  - RETINAL HAEMORRHAGE [None]
  - OCULAR HYPERAEMIA [None]
  - EYE PAIN [None]
